FAERS Safety Report 13837175 (Version 1)
Quarter: 2017Q3

REPORT INFORMATION
  Report Type: Spontaneous
  Country: US (occurrence: US)
  Receive Date: 20170804
  Receipt Date: 20170804
  Transmission Date: 20171127
  Serious: No
  Sender: FDA-Public Use
  Company Number: US-ROCHE-707659

PATIENT
  Sex: Male

DRUGS (1)
  1. BONIVA [Suspect]
     Active Substance: IBANDRONATE SODIUM
     Indication: NEOPLASM MALIGNANT
     Route: 065
     Dates: start: 1998, end: 200911

REACTIONS (2)
  - Urticaria [Unknown]
  - Pruritus [Unknown]
